FAERS Safety Report 8482557-7 (Version None)
Quarter: 2012Q3

REPORT INFORMATION
  Report Type: 
  Country: None (occurrence: None)
  Receive Date: 20120702
  Receipt Date: 20120620
  Transmission Date: 20120928
  Serious: No
  Sender: FDA-Public Use
  Company Number: US-ASTRAZENECA-2012SE23160

PATIENT
  Age: 62 Year
  Sex: Female
  Weight: 78 kg

DRUGS (12)
  1. EFFEXOR [Concomitant]
  2. ASPIRIN [Concomitant]
  3. NEURONTIN [Concomitant]
     Indication: FIBROMYALGIA
  4. HYDROCHLORTHIAZIDE [Concomitant]
     Indication: BLOOD PRESSURE ABNORMAL
  5. VITAMIN D [Concomitant]
  6. XANAX [Concomitant]
     Indication: SLEEP DISORDER
  7. COLACE [Concomitant]
     Indication: CONSTIPATION
     Dosage: AT NIGHT
  8. SITRACAL SR [Concomitant]
     Indication: VITAMIN D DECREASED
  9. SEROQUEL [Suspect]
     Indication: SLEEP DISORDER
     Route: 048
     Dates: start: 20070101
  10. XANAX [Concomitant]
     Indication: ANXIETY
  11. RED YEAST RICE [Concomitant]
     Indication: BLOOD CHOLESTEROL ABNORMAL
  12. MOTRIN [Concomitant]
     Indication: FIBROMYALGIA

REACTIONS (4)
  - OFF LABEL USE [None]
  - INSOMNIA [None]
  - FEELING ABNORMAL [None]
  - INTENTIONAL DRUG MISUSE [None]
